FAERS Safety Report 7534538-5 (Version None)
Quarter: 2011Q2

REPORT INFORMATION
  Report Type: 
  Country: None (occurrence: None)
  Receive Date: 20110609
  Receipt Date: 20090930
  Transmission Date: 20111010
  Serious: Yes (Death, Other)
  Sender: FDA-Public Use
  Company Number: PHHY2009JP02535

PATIENT
  Age: 6 Year
  Sex: Male
  Weight: 8 kg

DRUGS (9)
  1. NEORAL [Suspect]
     Indication: LIVER TRANSPLANT REJECTION
     Dosage: 100 MG, UNK
     Route: 048
     Dates: start: 20070501, end: 20081130
  2. PROGRAF [Concomitant]
     Indication: LIVER TRANSPLANT REJECTION
     Dosage: 1.6 MG, UNK
     Route: 048
     Dates: end: 20090120
  3. DENOSINE [Concomitant]
     Indication: ANTIVIRAL PROPHYLAXIS
     Dosage: 40 MG, UNK
     Dates: start: 20090109
  4. CERTICAN [Suspect]
     Indication: LIVER TRANSPLANT
  5. CERTICAN [Suspect]
     Indication: LIVER TRANSPLANT REJECTION
     Dosage: 0.5 MG, UNK
     Route: 048
     Dates: start: 20090107, end: 20090109
  6. NEORAL [Suspect]
     Indication: LIVER TRANSPLANT
     Dosage: 60 MG/DAY
     Route: 048
     Dates: start: 20090107, end: 20090110
  7. PROGRAF [Concomitant]
     Indication: LIVER TRANSPLANT
     Dosage: 6 MG, UNK
     Route: 048
     Dates: start: 20081201
  8. CELLCEPT [Concomitant]
     Indication: LIVER TRANSPLANT REJECTION
     Dosage: 400 MG, UNK
     Dates: start: 20081125
  9. SOLU-MEDROL [Concomitant]
     Dosage: 50 MG, UNK
     Route: 042
     Dates: start: 20081201

REACTIONS (7)
  - HEPATIC FAILURE [None]
  - RESPIRATORY FAILURE [None]
  - MULTI-ORGAN FAILURE [None]
  - RENAL FAILURE [None]
  - LIVER TRANSPLANT REJECTION [None]
  - GASTROINTESTINAL HAEMORRHAGE [None]
  - RENAL IMPAIRMENT [None]
